FAERS Safety Report 12167609 (Version 1)
Quarter: 2016Q1

REPORT INFORMATION
  Report Type: Spontaneous
  Country: US (occurrence: None)
  Receive Date: 20160309
  Receipt Date: 20160309
  Transmission Date: 20160526
  Serious: No
  Sender: FDA-Public Use
  Company Number: None

PATIENT
  Age: 37 Year
  Sex: Female
  Weight: 98.88 kg

DRUGS (4)
  1. PREPOPIK [Suspect]
     Active Substance: ANHYDROUS CITRIC ACID\MAGNESIUM OXIDE\SODIUM PICOSULFATE
     Indication: BOWEL PREPARATION
     Dosage: 2 SPLIT DOSES TAKEN BY MOUTH
     Route: 048
     Dates: start: 20160308, end: 20160308
  2. TUMS [Concomitant]
     Active Substance: CALCIUM CARBONATE
  3. KLONOPIN [Concomitant]
     Active Substance: CLONAZEPAM
  4. PREPOPIK [Suspect]
     Active Substance: ANHYDROUS CITRIC ACID\MAGNESIUM OXIDE\SODIUM PICOSULFATE
     Indication: COLONOSCOPY
     Dosage: 2 SPLIT DOSES TAKEN BY MOUTH
     Route: 048
     Dates: start: 20160308, end: 20160308

REACTIONS (6)
  - Vomiting [None]
  - Loss of consciousness [None]
  - Movement disorder [None]
  - Dehydration [None]
  - Pain [None]
  - Feeling abnormal [None]

NARRATIVE: CASE EVENT DATE: 20160308
